FAERS Safety Report 11443270 (Version 1)
Quarter: 2015Q3

REPORT INFORMATION
  Report Type: Spontaneous
  Country: US (occurrence: US)
  Receive Date: 20150901
  Receipt Date: 20150901
  Transmission Date: 20151125
  Serious: Yes (Hospitalization)
  Sender: FDA-Public Use
  Company Number: US-SHIRE-US201510715

PATIENT
  Age: 52 Year
  Sex: Female
  Weight: 95.24 kg

DRUGS (1)
  1. VYVANSE [Suspect]
     Active Substance: LISDEXAMFETAMINE DIMESYLATE
     Indication: PRODUCT USED FOR UNKNOWN INDICATION
     Dosage: UNK UNK, UNKNOWN(UNKNOWN NUMBER OF 70MG CAPSULES, 15)
     Route: 065
     Dates: start: 201508, end: 201508

REACTIONS (2)
  - Drug diversion [Recovered/Resolved]
  - Victim of crime [Recovered/Resolved]

NARRATIVE: CASE EVENT DATE: 201508
